FAERS Safety Report 21501528 (Version 2)
Quarter: 2022Q4

REPORT INFORMATION
  Report Type: Spontaneous
  Country: KE (occurrence: None)
  Receive Date: 20221025
  Receipt Date: 20221108
  Transmission Date: 20230113
  Serious: Yes (Other)
  Sender: FDA-Public Use
  Company Number: KE-ROCHE-3204082

PATIENT
  Age: 36 Year
  Sex: Female

DRUGS (1)
  1. HERCEPTIN [Suspect]
     Active Substance: TRASTUZUMAB
     Indication: Product used for unknown indication
     Route: 058

REACTIONS (8)
  - Lung neoplasm malignant [Unknown]
  - Breast cancer [Unknown]
  - Musculoskeletal chest pain [Unknown]
  - Breast cancer [Unknown]
  - Chest wall haematoma [Unknown]
  - Respiratory disorder [Unknown]
  - Metastases to lung [Unknown]
  - Metastases to pleura [Unknown]
